FAERS Safety Report 6918914-7 (Version None)
Quarter: 2010Q3

REPORT INFORMATION
  Report Type: 
  Country: None (occurrence: None)
  Receive Date: 20100811
  Receipt Date: 20100809
  Transmission Date: 20110219
  Serious: Yes (Other)
  Sender: FDA-Public Use
  Company Number: AR-BRISTOL-MYERS SQUIBB COMPANY-15048226

PATIENT
  Age: 37 Year
  Sex: Female

DRUGS (1)
  1. SPRYCEL [Suspect]
     Indication: CHRONIC MYELOID LEUKAEMIA
     Dosage: DOSE REDUCED TO 100MG IN ONE TAKE(ORAL)
     Route: 048
     Dates: start: 20091101

REACTIONS (3)
  - DIARRHOEA [None]
  - LEUKOPENIA [None]
  - ULCER [None]
